FAERS Safety Report 19874374 (Version 1)
Quarter: 2021Q3

REPORT INFORMATION
  Report Type: Spontaneous
  Country: US (occurrence: US)
  Receive Date: 20210923
  Receipt Date: 20210923
  Transmission Date: 20211014
  Serious: Yes (Other)
  Sender: FDA-Public Use
  Company Number: US-SLATE RUN PHARMACEUTICALS-21US000687

PATIENT

DRUGS (7)
  1. IMMUNOGLOBULINS NOS [Concomitant]
     Active Substance: IMMUNE GLOBULIN NOS
     Indication: BRUTON^S AGAMMAGLOBULINAEMIA
     Dosage: UNK, 1/WEEK
  2. NAPROSYN [Concomitant]
     Active Substance: NAPROXEN
     Indication: ARTHRITIS REACTIVE
  3. NAPROSYN [Concomitant]
     Active Substance: NAPROXEN
     Indication: ERYTHEMA NODOSUM
  4. AZITHROMYCIN USP [Suspect]
     Active Substance: AZITHROMYCIN
     Indication: CAMPYLOBACTER INFECTION
     Dosage: UNK
  5. NAPROSYN [Concomitant]
     Active Substance: NAPROXEN
     Indication: CAMPYLOBACTER INFECTION
  6. AZITHROMYCIN USP [Suspect]
     Active Substance: AZITHROMYCIN
     Indication: ARTHRITIS REACTIVE
  7. AZITHROMYCIN USP [Suspect]
     Active Substance: AZITHROMYCIN
     Indication: ERYTHEMA NODOSUM

REACTIONS (3)
  - Bacteraemia [Recovered/Resolved]
  - Treatment failure [Unknown]
  - Off label use [Recovered/Resolved]
